FAERS Safety Report 7689077-8 (Version None)
Quarter: 2011Q3

REPORT INFORMATION
  Report Type: 
  Country: None (occurrence: None)
  Receive Date: 20110811
  Receipt Date: 20110804
  Transmission Date: 20111222
  Serious: Yes (Hospitalization, Other)
  Sender: FDA-Public Use
  Company Number: 2011S1000060

PATIENT
  Age: 87 Year
  Sex: Male

DRUGS (10)
  1. KRYSTEXXA [Suspect]
     Indication: GOUT
     Dosage: 8 MG;X1;IV ; 8 MG;X1;IV
     Route: 042
     Dates: start: 20110701, end: 20110701
  2. KRYSTEXXA [Suspect]
     Indication: GOUT
     Dosage: 8 MG;X1;IV ; 8 MG;X1;IV
     Route: 042
     Dates: start: 20110721, end: 20110721
  3. OMEPRAZOLE [Concomitant]
  4. NEURONTIN [Concomitant]
  5. METHYLPREDNISOLONE [Concomitant]
  6. LORATADINE [Concomitant]
  7. ULORIC [Concomitant]
  8. ANTIBIOTICS [Concomitant]
  9. ASPIRIN [Concomitant]
  10. TYLENOL (CAPLET) [Concomitant]

REACTIONS (6)
  - BRONCHITIS [None]
  - INFUSION RELATED REACTION [None]
  - CHEST DISCOMFORT [None]
  - GOUT [None]
  - BREATH SOUNDS ABNORMAL [None]
  - CONDITION AGGRAVATED [None]
